FAERS Safety Report 14312363 (Version 3)
Quarter: 2018Q2

REPORT INFORMATION
  Report Type: Report from Study
  Country: CO (occurrence: CO)
  Receive Date: 20171221
  Receipt Date: 20180502
  Transmission Date: 20180711
  Serious: Yes (Other)
  Sender: FDA-Public Use
  Company Number: PHHY2017CO174902

PATIENT
  Sex: Male
  Weight: 76 kg

DRUGS (4)
  1. LUCENTIS [Suspect]
     Active Substance: RANIBIZUMAB
     Indication: DIABETIC RETINAL OEDEMA
     Dosage: 0.5 MG, QMO
     Route: 047
     Dates: start: 20170915
  2. LOSARTAN SANDOZ [Suspect]
     Active Substance: LOSARTAN
     Indication: HYPERTENSION
     Dosage: ONE TABLET EVERY 12 HOURS
     Route: 065
  3. LUCENTIS [Suspect]
     Active Substance: RANIBIZUMAB
     Dosage: 0.5 MG, QMO
     Route: 047
     Dates: start: 201712, end: 201712
  4. LUCENTIS [Suspect]
     Active Substance: RANIBIZUMAB
     Dosage: 0.5 MG, QMO
     Route: 047
     Dates: start: 20171030

REACTIONS (8)
  - Visual impairment [Unknown]
  - Glaucoma [Unknown]
  - Headache [Recovered/Resolved]
  - Crying [Unknown]
  - Eye pruritus [Recovered/Resolved]
  - Malaise [Unknown]
  - Eye pain [Unknown]
  - Vision blurred [Unknown]
